FAERS Safety Report 18853334 (Version 1)
Quarter: 2021Q1

REPORT INFORMATION
  Report Type: Spontaneous
  Country: US (occurrence: US)
  Receive Date: 20210205
  Receipt Date: 20210205
  Transmission Date: 20210420
  Serious: No
  Sender: FDA-Public Use
  Company Number: US-ASTRAZENECA-2021A003374

PATIENT
  Sex: Male
  Weight: 63.5 kg

DRUGS (1)
  1. LOKELMA [Suspect]
     Active Substance: SODIUM ZIRCONIUM CYCLOSILICATE
     Indication: HYPERKALAEMIA
     Route: 048
     Dates: start: 20201219, end: 20201223

REACTIONS (3)
  - Nausea [Unknown]
  - Drug intolerance [Unknown]
  - Product taste abnormal [Unknown]
